FAERS Safety Report 24325463 (Version 1)
Quarter: 2024Q3

REPORT INFORMATION
  Report Type: Spontaneous
  Country: US (occurrence: US)
  Receive Date: 20240917
  Receipt Date: 20240917
  Transmission Date: 20241017
  Serious: No
  Sender: TEVA
  Company Number: US-TEVA-VS-3239123

PATIENT
  Age: 17 Year
  Sex: Female

DRUGS (1)
  1. AJOVY [Suspect]
     Active Substance: FREMANEZUMAB-VFRM
     Indication: Migraine
     Dosage: 225/1.5 MG/ML
     Route: 065

REACTIONS (4)
  - Injection site reaction [Unknown]
  - Drug dose omission by device [Unknown]
  - Product use issue [Unknown]
  - Device breakage [Unknown]
